FAERS Safety Report 4554644-7 (Version None)
Quarter: 2004Q4

REPORT INFORMATION
  Report Type: 
  Country: None (occurrence: None)
  Receive Date: 20041227
  Receipt Date: 20041015
  Transmission Date: 20050328
  Serious: Yes (Other)
  Sender: FDA-Public Use
  Company Number: 2004-0007619

PATIENT
  Age: 44 Year
  Sex: Male
  Weight: 61.2356 kg

DRUGS (10)
  1. VIREAD [Suspect]
  2. FUZEON [Suspect]
     Indication: HIV INFECTION
     Dosage: 90 MG, 2 IN 1 D, SUBCUTANEOUS
     Route: 058
     Dates: start: 20040225, end: 20041015
  3. AMBIEN [Suspect]
     Dosage: HS PRN
  4. CLARITIN [Concomitant]
  5. ZERIT [Concomitant]
  6. RESCRIPTOR [Concomitant]
  7. ENALAPRIL (ENALAPRIL) [Concomitant]
  8. DAPSONE [Concomitant]
  9. NEURONTIN [Concomitant]
  10. OXYCONTIN [Concomitant]

REACTIONS (1)
  - RENAL FAILURE [None]
